FAERS Safety Report 19114907 (Version 1)
Quarter: 2021Q2

REPORT INFORMATION
  Report Type: Spontaneous
  Country: CN (occurrence: CN)
  Receive Date: 20210408
  Receipt Date: 20210408
  Transmission Date: 20210717
  Serious: Yes (Other)
  Sender: FDA-Public Use
  Company Number: CN-BAXTER-2021BAX006624

PATIENT
  Age: 48 Year
  Sex: Female
  Weight: 72 kg

DRUGS (2)
  1. ENDOXAN [Suspect]
     Active Substance: CYCLOPHOSPHAMIDE
     Indication: LUPUS NEPHRITIS
     Dosage: CYCLOPHOSPHAMIDE POWDER FOR INJECTION 0.6G +   0.9% SODIUM CHLORIDE INJECTION 500ML
     Route: 041
     Dates: start: 20210303, end: 20210303
  2. SODIUM CHLORIDE. [Suspect]
     Active Substance: SODIUM CHLORIDE
     Indication: MEDICATION DILUTION
     Dosage: CYCLOPHOSPHAMIDE POWDER FOR INJECTION 0.6G +0.9% SODIUM CHLORIDE INJECTION 500ML
     Route: 041
     Dates: start: 20210303, end: 20210303

REACTIONS (1)
  - Conjunctival haemorrhage [Unknown]

NARRATIVE: CASE EVENT DATE: 20210303
